FAERS Safety Report 10948078 (Version 1)
Quarter: 2015Q1

REPORT INFORMATION
  Report Type: Spontaneous
  Country: GB (occurrence: GB)
  Receive Date: 20150324
  Receipt Date: 20150324
  Transmission Date: 20150721
  Serious: Yes (Death)
  Sender: FDA-Public Use
  Company Number: GB-CIPLA LTD.-2015GB02089

PATIENT

DRUGS (8)
  1. IRINOTECAN [Suspect]
     Active Substance: IRINOTECAN
     Indication: COLORECTAL CANCER METASTATIC
     Dosage: 380 MG, 1 CYCLICAL
     Dates: start: 20141001, end: 20141001
  2. AFLIBERCEPT [Suspect]
     Active Substance: AFLIBERCEPT
     Indication: COLORECTAL CANCER METASTATIC
     Dosage: 4 MG/KG, 1 CYCLICAL
     Dates: start: 20141001, end: 20141001
  3. IRINOTECAN [Suspect]
     Active Substance: IRINOTECAN
     Dosage: 380 UNK, 1 CYCLICAL
     Route: 042
     Dates: start: 20141029, end: 20141029
  4. AFLIBERCEPT [Suspect]
     Active Substance: AFLIBERCEPT
     Dosage: 4 MG/KG, 1 CYCLICAL
     Route: 042
     Dates: start: 20141029, end: 20141029
  5. 5-FLUOROURACIL [Concomitant]
     Active Substance: FLUOROURACIL
     Dosage: 5100 MG, 1 CYCLICAL
     Route: 042
  6. FOLINIC ACID [Concomitant]
     Active Substance: LEUCOVORIN
     Indication: COLORECTAL CANCER METASTATIC
     Dosage: 350 MG, 1 CYCLICAL
     Route: 042
     Dates: start: 20141001, end: 20141001
  7. 5-FLUOROURACIL [Concomitant]
     Active Substance: FLUOROURACIL
     Indication: COLORECTAL CANCER METASTATIC
     Dosage: 5100 MG, 1 CYCLICAL
     Route: 042
     Dates: start: 20141001, end: 20141001
  8. FOLINIC ACID [Concomitant]
     Active Substance: LEUCOVORIN
     Dosage: 350 MG, 1 CYCLICAL
     Route: 042
     Dates: start: 20141029, end: 20141029

REACTIONS (4)
  - Dyspnoea [Fatal]
  - Pneumonitis [Fatal]
  - Respiratory failure [Fatal]
  - Pulmonary haemorrhage [Fatal]

NARRATIVE: CASE EVENT DATE: 20141110
